FAERS Safety Report 12815902 (Version 1)
Quarter: 2016Q4

REPORT INFORMATION
  Report Type: Spontaneous
  Country: IL (occurrence: IL)
  Receive Date: 20161005
  Receipt Date: 20161005
  Transmission Date: 20170207
  Serious: Yes (Death, Hospitalization, Other)
  Sender: FDA-Public Use
  Company Number: IL-MYLANLABS-2016M1042597

PATIENT

DRUGS (2)
  1. CYTARABINE. [Suspect]
     Active Substance: CYTARABINE
     Indication: ACUTE MYELOID LEUKAEMIA
     Dosage: 100 MG/M2 FOR 7 CONSECUTIVE DAYS
     Route: 065
  2. DAUNORUBICIN [Suspect]
     Active Substance: DAUNORUBICIN
     Indication: ACUTE MYELOID LEUKAEMIA
     Dosage: 30 MG/M2; ON DAY 1, 3 AND 4
     Route: 042

REACTIONS (3)
  - Gastrointestinal haemorrhage [Fatal]
  - Gastrointestinal inflammation [Fatal]
  - Shock haemorrhagic [Fatal]
